FAERS Safety Report 20520470 (Version 1)
Quarter: 2022Q1

REPORT INFORMATION
  Report Type: Spontaneous
  Country: US (occurrence: None)
  Receive Date: 20220225
  Receipt Date: 20220225
  Transmission Date: 20220424
  Serious: Yes (Hospitalization)
  Sender: FDA-Public Use
  Company Number: None

PATIENT
  Age: 62 Year
  Sex: Female
  Weight: 71.1 kg

DRUGS (1)
  1. BREXUCABTAGENE AUTOLEUCEL [Suspect]
     Active Substance: BREXUCABTAGENE AUTOLEUCEL
     Indication: Mantle cell lymphoma
     Dosage: OTHER FREQUENCY : ONCE;?
     Route: 042
     Dates: start: 20220110, end: 20220110

REACTIONS (10)
  - Cytokine release syndrome [None]
  - Immune effector cell-associated neurotoxicity syndrome [None]
  - Hypertension [None]
  - Nausea [None]
  - Vomiting [None]
  - Electrocardiogram QT prolonged [None]
  - Neutropenia [None]
  - Gait disturbance [None]
  - Physical deconditioning [None]
  - Infusion related reaction [None]

NARRATIVE: CASE EVENT DATE: 20220111
